FAERS Safety Report 5091739-6 (Version None)
Quarter: 2006Q3

REPORT INFORMATION
  Report Type: 
  Country: None (occurrence: None)
  Receive Date: 20060829
  Receipt Date: 20060424
  Transmission Date: 20061208
  Serious: Yes (Death)
  Sender: FDA-Public Use
  Company Number: US-BRISTOL-MYERS SQUIBB COMPANY-13354592

PATIENT
  Age: 69 Year
  Sex: Male
  Weight: 122 kg

DRUGS (7)
  1. ERBITUX [Suspect]
     Indication: COLORECTAL CANCER METASTATIC
     Route: 042
     Dates: start: 20060420, end: 20060420
  2. TYLENOL [Concomitant]
     Indication: PREMEDICATION
     Route: 048
     Dates: start: 20060101, end: 20060101
  3. DECADRON [Concomitant]
     Indication: PREMEDICATION
     Route: 042
     Dates: start: 20060101, end: 20060101
  4. DECADRON [Concomitant]
     Route: 042
  5. BENADRYL [Concomitant]
     Indication: PREMEDICATION
     Route: 042
     Dates: start: 20060101, end: 20060101
  6. BENADRYL [Concomitant]
     Route: 042
  7. KYTRIL [Concomitant]
     Route: 042

REACTIONS (1)
  - INFUSION RELATED REACTION [None]
